FAERS Safety Report 7241386-2 (Version None)
Quarter: 2011Q1

REPORT INFORMATION
  Report Type: 
  Country: None (occurrence: None)
  Receive Date: 20110120
  Receipt Date: 20110120
  Transmission Date: 20110831
  Serious: Yes (Hospitalization)
  Sender: FDA-Public Use
  Company Number: None

PATIENT
  Sex: Female

DRUGS (1)
  1. MERCAPTOPURINE [Suspect]
     Indication: CROHN'S DISEASE
     Dosage: 50 MG DAILY ORAL
     Route: 048
     Dates: start: 20101228, end: 20110102

REACTIONS (1)
  - PANCREATITIS ACUTE [None]
